FAERS Safety Report 5924597-5 (Version None)
Quarter: 2008Q4

REPORT INFORMATION
  Report Type: 
  Country: None (occurrence: None)
  Receive Date: 20081020
  Receipt Date: 20081015
  Transmission Date: 20090506
  Serious: Yes (Death, Life-Threatening, Hospitalization, Other)
  Sender: FDA-Public Use
  Company Number: BG-PFIZER INC-2008086117

PATIENT
  Sex: Female
  Weight: 43 kg

DRUGS (12)
  1. SU-011,248 [Suspect]
     Indication: COLORECTAL CANCER
     Dosage: DAILY DOSE:37.5MG
     Route: 048
     Dates: start: 20080917
  2. IRINOTECAN HCL [Suspect]
     Indication: COLORECTAL CANCER
     Route: 042
     Dates: start: 20080917
  3. FLUOROURACIL [Suspect]
     Indication: COLORECTAL CANCER
     Route: 042
     Dates: start: 20080917
  4. FLUOROURACIL [Suspect]
     Route: 042
     Dates: start: 20080917
  5. CALCIUM FOLINATE [Suspect]
     Indication: COLORECTAL CANCER
     Route: 042
     Dates: start: 20080917
  6. BISOPROLOL FUMARATE [Concomitant]
     Indication: HYPERTENSION
     Dates: start: 20080808
  7. PAMATON [Concomitant]
     Indication: HYPERTENSION
     Dosage: TEXT:332/350 MG
     Dates: start: 20080808
  8. HYDROCHLOROTHIAZIDE [Concomitant]
     Indication: HYPERTENSION
     Dates: start: 20080808
  9. RAMIPRIL [Concomitant]
     Indication: HYPERTENSION
     Dates: start: 20080808
  10. ADEMETIONINE [Concomitant]
     Indication: METASTASES TO LIVER
     Dates: start: 20080809
  11. SILYMARIN [Concomitant]
     Indication: METASTASES TO LIVER
     Dates: start: 20080809
  12. GRANISETRON [Concomitant]
     Indication: NAUSEA
     Dates: start: 20080917

REACTIONS (4)
  - FEBRILE NEUTROPENIA [None]
  - LEUKOPENIA [None]
  - MUCOSAL INFLAMMATION [None]
  - THROMBOCYTOPENIA [None]
